FAERS Safety Report 17664810 (Version 1)
Quarter: 2020Q2

REPORT INFORMATION
  Report Type: Report from Study
  Country: None (occurrence: US)
  Receive Date: 20200414
  Receipt Date: 20200414
  Transmission Date: 20200713
  Serious: No
  Sender: FDA-Public Use
  Company Number: US-BIOVITRUM-2019US2675

PATIENT
  Sex: Female

DRUGS (1)
  1. KINERET [Suspect]
     Active Substance: ANAKINRA
     Indication: STILL^S DISEASE
     Route: 058
     Dates: start: 20190808

REACTIONS (5)
  - Dyspnoea [Unknown]
  - Urticaria [Unknown]
  - Off label use [Not Recovered/Not Resolved]
  - Unevaluable event [Unknown]
  - Chest pain [Unknown]
